FAERS Safety Report 5927340-9 (Version None)
Quarter: 2008Q4

REPORT INFORMATION
  Report Type: 
  Country: None (occurrence: None)
  Receive Date: 20081021
  Receipt Date: 20081006
  Transmission Date: 20090506
  Serious: Yes (Other)
  Sender: FDA-Public Use
  Company Number: B0541746A

PATIENT
  Sex: Male
  Weight: 88.4968 kg

DRUGS (14)
  1. ZIDOVUDINE [Suspect]
     Indication: HIV INFECTION
  2. PHENOXYMETHYLPENICILLIN [Suspect]
  3. LAMIVUDINE [Concomitant]
  4. INDINIVIR SULFATE [Concomitant]
  5. RITONAVIR [Concomitant]
  6. TENOFOVIR [Concomitant]
  7. DIDANOSINE [Suspect]
     Indication: HIV INFECTION
  8. STAVUDINE [Suspect]
     Indication: HIV INFECTION
  9. ATAZANAVIR SULFATE [Concomitant]
  10. LOPINAVIR AND RITONAVIR [Concomitant]
  11. FOSAMPRENAVIR [Concomitant]
  12. EFAVIRENZ [Suspect]
     Indication: HIV INFECTION
  13. NEVIRAPINE [Suspect]
     Indication: HIV INFECTION
  14. FEXOFENADINE HYDROCHLORID [Concomitant]

REACTIONS (13)
  - ANAEMIA [None]
  - BLOOD CHOLESTEROL INCREASED [None]
  - BLOOD TRIGLYCERIDES INCREASED [None]
  - DRUG TOXICITY [None]
  - FACIAL WASTING [None]
  - FAT TISSUE INCREASED [None]
  - HYPERLIPIDAEMIA [None]
  - LIPODYSTROPHY ACQUIRED [None]
  - NEUROPATHY PERIPHERAL [None]
  - PHYSICAL EXAMINATION ABNORMAL [None]
  - RASH [None]
  - TREATMENT NONCOMPLIANCE [None]
  - WEIGHT INCREASED [None]
